FAERS Safety Report 21734333 (Version 1)
Quarter: 2022Q4

REPORT INFORMATION
  Report Type: Spontaneous
  Country: US (occurrence: None)
  Receive Date: 20221214
  Receipt Date: 20221214
  Transmission Date: 20230113
  Serious: No
  Sender: FDA-Public Use
  Company Number: None

PATIENT
  Age: 61 Year
  Sex: Female

DRUGS (2)
  1. TALTZ [Suspect]
     Active Substance: IXEKIZUMAB
     Indication: Drug therapy
     Dosage: INJECT 80MG (1 PEN) SUBCUTANEOUSLY EVERY 4 WEEKS AS DIRECTED    ?
     Route: 058
     Dates: start: 202112
  2. TALTZ [Suspect]
     Active Substance: IXEKIZUMAB
     Indication: Psoriasis

REACTIONS (1)
  - Influenza [None]
